FAERS Safety Report 13503713 (Version 1)
Quarter: 2017Q2

REPORT INFORMATION
  Report Type: Spontaneous
  Country: US (occurrence: US)
  Receive Date: 20170502
  Receipt Date: 20170502
  Transmission Date: 20170830
  Serious: No
  Sender: FDA-Public Use
  Company Number: US-AKRIMAX-TIR-2017-0337

PATIENT
  Age: 41 Year
  Sex: Female

DRUGS (2)
  1. TIROSINT [Suspect]
     Active Substance: LEVOTHYROXINE SODIUM
     Indication: AUTOIMMUNE THYROIDITIS
     Dosage: ONE 125MCG CAPSULE DAILY
     Route: 048
     Dates: start: 201703
  2. TIROSINT [Suspect]
     Active Substance: LEVOTHYROXINE SODIUM
     Indication: AUTOIMMUNE THYROIDITIS
     Dosage: ONE 137MCG CAPSULE DAILY
     Route: 048
     Dates: start: 2014, end: 201703

REACTIONS (8)
  - Viral upper respiratory tract infection [Unknown]
  - Hyperthyroidism [Unknown]
  - Anxiety [Unknown]
  - Dyspnoea [Unknown]
  - Palpitations [Unknown]
  - Muscular weakness [Unknown]
  - Decreased appetite [Unknown]
  - Drug level above therapeutic [Unknown]

NARRATIVE: CASE EVENT DATE: 2017
